FAERS Safety Report 12249190 (Version 3)
Quarter: 2017Q3

REPORT INFORMATION
  Report Type: Spontaneous
  Country: US (occurrence: US)
  Receive Date: 20160408
  Receipt Date: 20170726
  Transmission Date: 20171127
  Serious: Yes (Disabling)
  Sender: FDA-Public Use
  Company Number: US-PFIZER INC-2016179934

PATIENT
  Age: 63 Year
  Sex: Female
  Weight: 53 kg

DRUGS (5)
  1. AZITHROMYCIN ANHYDROUS. [Suspect]
     Active Substance: AZITHROMYCIN ANHYDROUS
     Indication: MYALGIA
  2. AZITHROMYCIN ANHYDROUS. [Suspect]
     Active Substance: AZITHROMYCIN ANHYDROUS
     Indication: OROPHARYNGEAL PAIN
  3. ALEVE [Concomitant]
     Active Substance: NAPROXEN SODIUM
     Indication: PYREXIA
     Dosage: 1 TO 2 DOSAGE FORMS AS NEEDED
     Dates: start: 20160309, end: 201603
  4. AZITHROMYCIN ANHYDROUS. [Suspect]
     Active Substance: AZITHROMYCIN ANHYDROUS
     Indication: CHILLS
  5. AZITHROMYCIN ANHYDROUS. [Suspect]
     Active Substance: AZITHROMYCIN ANHYDROUS
     Indication: PYREXIA
     Dosage: 2 TABLETS OF THE 250MG THE FIRST DAY, THEN 1 TABLET OF THE 250MG A DAY THEREAFTER, TOTAL OF 6 PILLS
     Route: 048
     Dates: start: 20160312, end: 20160316

REACTIONS (3)
  - Anosmia [Not Recovered/Not Resolved]
  - Ageusia [Not Recovered/Not Resolved]
  - Cough [Unknown]

NARRATIVE: CASE EVENT DATE: 201603
